FAERS Safety Report 24577092 (Version 2)
Quarter: 2024Q4

REPORT INFORMATION
  Report Type: Spontaneous
  Country: US (occurrence: US)
  Receive Date: 20241104
  Receipt Date: 20241108
  Transmission Date: 20250115
  Serious: No
  Sender: PFIZER
  Company Number: US-PFIZER INC-202300012623

PATIENT
  Age: 65 Year
  Sex: Male
  Weight: 57.88 kg

DRUGS (3)
  1. VYNDAQEL [Suspect]
     Active Substance: TAFAMIDIS MEGLUMINE
     Indication: Cardiac amyloidosis
     Dosage: 80 MG, DAILY
     Dates: start: 2019
  2. VYNDAQEL [Suspect]
     Active Substance: TAFAMIDIS MEGLUMINE
     Indication: Amyloidosis
  3. VIVITROL [Concomitant]
     Active Substance: NALTREXONE
     Indication: Amyloidosis
     Dosage: UNK (EVERY 15 DAYS FOR INFUSION)

REACTIONS (1)
  - Bone contusion [Unknown]
